FAERS Safety Report 5263432-8 (Version None)
Quarter: 2007Q1

REPORT INFORMATION
  Report Type: 
  Country: None (occurrence: None)
  Receive Date: 20070313
  Receipt Date: 20070305
  Transmission Date: 20070707
  Serious: Yes (Hospitalization)
  Sender: FDA-Public Use
  Company Number: 2007AP00424

PATIENT
  Age: 13567 Day
  Sex: Female
  Weight: 48 kg

DRUGS (20)
  1. IRESSA [Suspect]
     Indication: LUNG ADENOCARCINOMA STAGE I
     Route: 048
     Dates: start: 20061108, end: 20061208
  2. DECADRON [Suspect]
     Indication: BRAIN OEDEMA
     Route: 048
     Dates: start: 20061016, end: 20070102
  3. DECADRON [Suspect]
     Route: 048
     Dates: start: 20070103, end: 20070111
  4. DECADRON [Suspect]
     Route: 048
     Dates: start: 20070112, end: 20070118
  5. DECADRON [Suspect]
     Route: 048
     Dates: start: 20070119
  6. DEPAKENE [Suspect]
     Indication: CONVULSION
     Route: 048
     Dates: start: 20061025, end: 20061210
  7. DEPAKENE [Suspect]
     Route: 048
     Dates: start: 20061214
  8. SOLANAX [Suspect]
     Indication: DEPRESSION
     Route: 048
     Dates: start: 20061213, end: 20061227
  9. AMOBAN [Concomitant]
     Indication: INSOMNIA
     Route: 048
     Dates: start: 20061201, end: 20061225
  10. LOXONIN [Concomitant]
     Indication: CHEST PAIN
     Route: 048
     Dates: start: 20061211, end: 20061214
  11. MUCOSTA [Concomitant]
     Indication: ADVERSE DRUG REACTION
     Route: 048
     Dates: start: 20061211, end: 20061214
  12. CARBOPLATIN [Concomitant]
     Dosage: 4 COURSES
     Dates: start: 20060207, end: 20060701
  13. PACLITAXEL [Concomitant]
     Dates: start: 20060207, end: 20060701
  14. ALEVIATIN [Concomitant]
  15. HORIZON [Concomitant]
     Indication: CONVULSION
     Route: 042
     Dates: start: 20061015
  16. PHENYTOIN [Concomitant]
     Dates: start: 20061015, end: 20061015
  17. PHENYTOIN [Concomitant]
     Route: 048
     Dates: start: 20061016, end: 20061024
  18. METHYLPREDNISOLONE SODIUM SUCCINATE [Concomitant]
     Dates: start: 20061015, end: 20061015
  19. DEXAMETHASONE [Concomitant]
     Dates: start: 20061016
  20. RADIOTHERAPY [Concomitant]
     Indication: METASTASES TO CENTRAL NERVOUS SYSTEM
     Dosage: 20 GY
     Dates: start: 20061030, end: 20061101

REACTIONS (5)
  - DEPRESSION [None]
  - DRY EYE [None]
  - INTERSTITIAL LUNG DISEASE [None]
  - NASAL CONGESTION [None]
  - RHINORRHOEA [None]
